FAERS Safety Report 18699065 (Version 2)
Quarter: 2021Q1

REPORT INFORMATION
  Report Type: Spontaneous
  Country: US (occurrence: US)
  Receive Date: 20210105
  Receipt Date: 20210112
  Transmission Date: 20210419
  Serious: Yes (Other)
  Sender: FDA-Public Use
  Company Number: US-BIOVITRUM-2020US8152

PATIENT
  Sex: Male
  Weight: 7 kg

DRUGS (10)
  1. CLINDAMYCIN. [Concomitant]
     Active Substance: CLINDAMYCIN
  2. IPRATROPIUM?ALBUTEROL [Concomitant]
     Active Substance: ALBUTEROL\IPRATROPIUM
  3. BUDESONIDE. [Concomitant]
     Active Substance: BUDESONIDE
  4. OXYCODONE HYDROCHLORIDE. [Concomitant]
     Active Substance: OXYCODONE HYDROCHLORIDE
  5. CIPROFLOXACIN/DEXAMETH [Concomitant]
  6. SYNAGIS [Suspect]
     Active Substance: PALIVIZUMAB
     Indication: PRODUCT USED FOR UNKNOWN INDICATION
     Route: 030
  7. FAMOTIDINE. [Concomitant]
     Active Substance: FAMOTIDINE
  8. TOBRAMYCIN. [Concomitant]
     Active Substance: TOBRAMYCIN
  9. AZITHROMYCIN ANHYDROUS. [Concomitant]
     Active Substance: AZITHROMYCIN ANHYDROUS
  10. GABAPENTIN. [Concomitant]
     Active Substance: GABAPENTIN

REACTIONS (2)
  - Pseudomonas infection [Unknown]
  - Tracheitis [Unknown]
